FAERS Safety Report 25243772 (Version 2)
Quarter: 2025Q3

REPORT INFORMATION
  Report Type: Other
  Country: EU (occurrence: EU)
  Receive Date: 20250428
  Receipt Date: 20250710
  Transmission Date: 20251021
  Serious: Yes (Life-Threatening)
  Sender: ZYDUS PHARM
  Company Number: None

PATIENT

DRUGS (5)
  1. AMLODIPINE [Suspect]
     Active Substance: AMLODIPINE BESYLATE
     Indication: Product used for unknown indication
     Route: 048
     Dates: start: 20250228, end: 20250316
  2. CALCIPARINE [Suspect]
     Active Substance: HEPARIN CALCIUM
     Indication: Anticoagulant therapy
     Route: 058
     Dates: start: 20250228, end: 20250316
  3. FIDAXOMICIN [Suspect]
     Active Substance: FIDAXOMICIN
     Indication: Product used for unknown indication
     Route: 048
     Dates: start: 20250303, end: 20250315
  4. MEROPENEM ANHYDROUS [Suspect]
     Active Substance: MEROPENEM ANHYDROUS
     Indication: Arthritis bacterial
     Route: 042
     Dates: start: 20250209, end: 20250316
  5. TYGACIL [Suspect]
     Active Substance: TIGECYCLINE
     Indication: Arthritis bacterial
     Route: 042
     Dates: start: 20250212, end: 20250316

REACTIONS (1)
  - Gastrointestinal haemorrhage [Recovered/Resolved]

NARRATIVE: CASE EVENT DATE: 20250316
